FAERS Safety Report 7256103-X (Version None)
Quarter: 2011Q1

REPORT INFORMATION
  Report Type: 
  Country: None (occurrence: None)
  Receive Date: 20110129
  Receipt Date: 20100602
  Transmission Date: 20110831
  Serious: No
  Sender: FDA-Public Use
  Company Number: US-ABBOTT-10P-163-0648731-00

PATIENT
  Age: 24 Year
  Sex: Male

DRUGS (11)
  1. MULTI-VITAMIN [Concomitant]
     Indication: CROHN'S DISEASE
     Dosage: DAILY
     Route: 048
  2. MULTI-VITAMIN [Concomitant]
     Dosage: DAILY
  3. CALCIUM 600 + D [Concomitant]
     Indication: PRODUCT USED FOR UNKNOWN INDICATION
     Dosage: DAILY
  4. PENTASA [Concomitant]
     Indication: CROHN'S DISEASE
     Route: 048
  5. HUMIRA [Suspect]
     Indication: CROHN'S DISEASE
     Dates: start: 20100507, end: 20100507
  6. HUMIRA [Suspect]
     Dates: start: 20100521, end: 20100521
  7. FOLIC ACID [Concomitant]
     Indication: CROHN'S DISEASE
     Route: 048
  8. PREDNISONE [Concomitant]
     Indication: CROHN'S DISEASE
     Dosage: TAPERED DOSE
     Route: 048
  9. VITAMIN B-12 [Concomitant]
     Indication: PRODUCT USED FOR UNKNOWN INDICATION
  10. HUMIRA [Suspect]
  11. AZATHIOPRINE [Concomitant]
     Indication: CROHN'S DISEASE
     Route: 048

REACTIONS (2)
  - CONTUSION [None]
  - RASH PAPULAR [None]
